FAERS Safety Report 4811163-8 (Version None)
Quarter: 2005Q4

REPORT INFORMATION
  Report Type: 
  Country: None (occurrence: None)
  Receive Date: 20051025
  Receipt Date: 20050915
  Transmission Date: 20060501
  Serious: Yes (Other)
  Sender: FDA-Public Use
  Company Number: 12689

PATIENT
  Age: 25 Year
  Sex: Female

DRUGS (2)
  1. PARVOLEX [Suspect]
  2. HYDROCORTISONE [Concomitant]

REACTIONS (3)
  - CHEST PAIN [None]
  - FLUSHING [None]
  - URTICARIA [None]
